FAERS Safety Report 20924190 (Version 2)
Quarter: 2022Q2

REPORT INFORMATION
  Report Type: Spontaneous
  Country: US (occurrence: US)
  Receive Date: 20220607
  Receipt Date: 20220608
  Transmission Date: 20220721
  Serious: No
  Sender: FDA-Public Use
  Company Number: US-PFIZER INC-202200791487

PATIENT
  Age: 86 Year
  Sex: Female

DRUGS (1)
  1. SPIRONOLACTONE [Suspect]
     Active Substance: SPIRONOLACTONE
     Dosage: 0.5 MG, ALTERNATE DAY (EVERY OTHER DAY)
     Route: 048

REACTIONS (3)
  - Blood glucose increased [Unknown]
  - Blood urea abnormal [Unknown]
  - Off label use [Unknown]
